FAERS Safety Report 11288771 (Version 1)
Quarter: 2015Q3

REPORT INFORMATION
  Report Type: Report from Study
  Country: CA (occurrence: CA)
  Receive Date: 20150721
  Receipt Date: 20150721
  Transmission Date: 20151125
  Serious: Yes (Other)
  Sender: FDA-Public Use
  Company Number: CA-AMGEN-CANSL2015071411

PATIENT
  Age: 73 Year
  Sex: Female

DRUGS (9)
  1. NISOLDIPINE. [Concomitant]
     Active Substance: NISOLDIPINE
     Dosage: 60 MG, UNK
  2. MONUROL [Concomitant]
     Active Substance: FOSFOMYCIN TROMETHAMINE
     Dosage: UNK
  3. PROLIA [Suspect]
     Active Substance: DENOSUMAB
     Indication: OSTEOPOROSIS POSTMENOPAUSAL
     Dosage: 60 MG/ML, UNK
     Route: 058
     Dates: start: 20141121
  4. TELMISARTAN. [Concomitant]
     Active Substance: TELMISARTAN
     Dosage: 80 MG, UNK
  5. VITALUX                            /00322001/ [Concomitant]
     Indication: EYE DISORDER
     Dosage: UNK
  6. VESICARE [Concomitant]
     Active Substance: SOLIFENACIN SUCCINATE
     Indication: INCONTINENCE
     Dosage: UNK
  7. RASILEZ [Concomitant]
     Active Substance: ALISKIREN
     Indication: BLOOD PRESSURE MEASUREMENT
     Dosage: 150 MG, UNK
  8. CALCIUM [Concomitant]
     Active Substance: CALCIUM
     Dosage: UNK UNK, QD
  9. DOCUSATE [Concomitant]
     Active Substance: DOCUSATE
     Dosage: 100 MG, TID

REACTIONS (5)
  - Post procedural swelling [Recovering/Resolving]
  - Dizziness [Unknown]
  - Diverticulitis [Unknown]
  - Fall [Unknown]
  - Upper limb fracture [Unknown]

NARRATIVE: CASE EVENT DATE: 20150520
